FAERS Safety Report 12708205 (Version 1)
Quarter: 2016Q3

REPORT INFORMATION
  Report Type: Spontaneous
  Country: US (occurrence: US)
  Receive Date: 20160901
  Receipt Date: 20160901
  Transmission Date: 20161109
  Serious: No
  Sender: FDA-Public Use
  Company Number: US-ELI_LILLY_AND_COMPANY-US201608013248

PATIENT
  Age: 59 Year
  Sex: Male
  Weight: 158.73 kg

DRUGS (1)
  1. HUMALOG [Suspect]
     Active Substance: INSULIN LISPRO
     Indication: TYPE 2 DIABETES MELLITUS
     Dosage: UNK, UNKNOWN
     Route: 065
     Dates: start: 20160825

REACTIONS (5)
  - Hyperhidrosis [Recovering/Resolving]
  - Dizziness [Recovering/Resolving]
  - Blood glucose decreased [Recovering/Resolving]
  - Tremor [Recovering/Resolving]
  - Injury associated with device [Recovering/Resolving]

NARRATIVE: CASE EVENT DATE: 20160825
